FAERS Safety Report 10775954 (Version 1)
Quarter: 2015Q1

REPORT INFORMATION
  Report Type: Spontaneous
  Country: US (occurrence: None)
  Receive Date: 20150205
  Receipt Date: 20150205
  Transmission Date: 20150721
  Serious: No
  Sender: FDA-Public Use
  Company Number: None

PATIENT

DRUGS (1)
  1. OMNISCAN [Suspect]
     Active Substance: GADODIAMIDE
     Dosage: DOSAGE FORM: INJECTABLE, ADM ROUTE: INJECTION, STRENGTH: 287 MG/ML, TYPE: SINGLE USE PREFILLED, SIZE 20 ML

REACTIONS (1)
  - Product label issue [None]
